FAERS Safety Report 4604919-8 (Version None)
Quarter: 2005Q1

REPORT INFORMATION
  Report Type: 
  Country: None (occurrence: None)
  Receive Date: 20050310
  Receipt Date: 20050310
  Transmission Date: 20050727
  Serious: Yes (Hospitalization)
  Sender: FDA-Public Use
  Company Number: None

PATIENT
  Age: 26 Year
  Weight: 49.8957 kg

DRUGS (1)
  1. ULTRAM [Suspect]
     Indication: POST PROCEDURAL PAIN
     Dosage: 50 MG Q3H
     Dates: start: 20051210, end: 20051211

REACTIONS (1)
  - GRAND MAL CONVULSION [None]
